FAERS Safety Report 15181978 (Version 1)
Quarter: 2018Q3

REPORT INFORMATION
  Report Type: Spontaneous
  Country: MK (occurrence: MK)
  Receive Date: 20180624
  Receipt Date: 20180624
  Transmission Date: 20181010
  Serious: Yes (Other)
  Sender: FDA-Public Use
  Company Number: None

PATIENT
  Age: 21 Year
  Sex: Male
  Weight: 55 kg

DRUGS (8)
  1. MOVICOL ( PEG ?3350 ) [Concomitant]
  2. VENLAFAXINE [Concomitant]
     Active Substance: VENLAFAXINE HYDROCHLORIDE
  3. IMMUNOKOMPLEX ( ALL VITAMINS , MAGNESIUM , B VITAMINS AND ECHINACEA ) [Concomitant]
  4. GINGKO BILOBA LEAF [Concomitant]
  5. VALERIAN ROOT [Concomitant]
     Active Substance: VALERIAN
  6. BISACODYL. [Suspect]
     Active Substance: BISACODYL
     Indication: CONSTIPATION
     Dosage: ?          QUANTITY:20 TABLET(S);?
     Route: 048
     Dates: start: 20180611, end: 20180623
  7. RIFAXIMIN. [Concomitant]
     Active Substance: RIFAXIMIN
  8. GAS?X (SIMETHICONE) [Concomitant]

REACTIONS (2)
  - Heart rate increased [None]
  - Blood pressure increased [None]

NARRATIVE: CASE EVENT DATE: 20180623
